FAERS Safety Report 25522482 (Version 2)
Quarter: 2025Q3

REPORT INFORMATION
  Report Type: Spontaneous
  Country: JP (occurrence: JP)
  Receive Date: 20250707
  Receipt Date: 20250807
  Transmission Date: 20251021
  Serious: Yes (Hospitalization)
  Sender: NOVO NORDISK
  Company Number: JP-NOVOPROD-1467999

PATIENT
  Sex: Female
  Weight: 2.63 kg

DRUGS (9)
  1. SOGROYA [Suspect]
     Active Substance: SOMAPACITAN-BECO
     Indication: Product used for unknown indication
     Dosage: 1.5 MG, QW
     Route: 064
     Dates: start: 20230308
  2. SOGROYA [Suspect]
     Active Substance: SOMAPACITAN-BECO
     Dosage: 2 MG, QW
     Route: 064
     Dates: start: 20230531
  3. SOGROYA [Suspect]
     Active Substance: SOMAPACITAN-BECO
     Dosage: 3 MG, QW
     Route: 064
     Dates: start: 20230913
  4. SOGROYA [Suspect]
     Active Substance: SOMAPACITAN-BECO
     Dosage: 3.5 MG, QW
     Route: 064
     Dates: start: 20240110
  5. SOGROYA [Suspect]
     Active Substance: SOMAPACITAN-BECO
     Dosage: 4 MG, QW
     Route: 064
     Dates: start: 20240214
  6. SOGROYA [Suspect]
     Active Substance: SOMAPACITAN-BECO
     Dosage: 5 MG, QW
     Route: 064
     Dates: start: 20240605, end: 202406
  7. SOGROYA [Suspect]
     Active Substance: SOMAPACITAN-BECO
     Dosage: 4.5 MG, QW
     Route: 064
     Dates: start: 20240501
  8. DESMOPRESSIN ACETATE [Concomitant]
     Active Substance: DESMOPRESSIN ACETATE
     Indication: Product used for unknown indication
     Route: 064
  9. LEVOTHYROXINE [Concomitant]
     Active Substance: LEVOTHYROXINE
     Indication: Product used for unknown indication
     Route: 064

REACTIONS (2)
  - Respiratory disorder neonatal [Unknown]
  - Foetal exposure during pregnancy [Recovered/Resolved]

NARRATIVE: CASE EVENT DATE: 20240601
